FAERS Safety Report 8839363 (Version 2)
Quarter: 2012Q4

REPORT INFORMATION
  Report Type: 
  Country: JP (occurrence: JP)
  Receive Date: 20121015
  Receipt Date: 20121024
  Transmission Date: 20130627
  Serious: No
  Sender: FDA-Public Use
  Company Number: JP-JNJFOC-20121004312

PATIENT
  Age: 45 Year
  Sex: Male

DRUGS (3)
  1. REMICADE [Suspect]
     Indication: PSORIASIS
     Route: 042
     Dates: start: 20100602
  2. REMICADE [Suspect]
     Indication: PSORIASIS
     Dosage: 5th administration
     Route: 042
  3. REMICADE [Suspect]
     Indication: PSORIASIS
     Route: 042
     Dates: start: 20101118, end: 20101118

REACTIONS (2)
  - Double stranded DNA antibody positive [Not Recovered/Not Resolved]
  - Antinuclear antibody positive [Not Recovered/Not Resolved]
